FAERS Safety Report 11527750 (Version 1)
Quarter: 2015Q3

REPORT INFORMATION
  Report Type: Spontaneous
  Country: US (occurrence: US)
  Receive Date: 20150903
  Receipt Date: 20150903
  Transmission Date: 20151125
  Serious: No
  Sender: FDA-Public Use
  Company Number: US-ELI_LILLY_AND_COMPANY-US200904004480

PATIENT
  Sex: Female

DRUGS (3)
  1. HUMALOG [Suspect]
     Active Substance: INSULIN LISPRO
     Dates: start: 200710
  2. IRON [Concomitant]
     Active Substance: IRON
     Dosage: UNK, DAILY (1/D)
     Dates: start: 2009
  3. IRON [Concomitant]
     Active Substance: IRON
     Dosage: UNK, 3/D
     Dates: start: 200903

REACTIONS (3)
  - Grip strength decreased [Not Recovered/Not Resolved]
  - Anaemia [Recovering/Resolving]
  - Spinal pain [Not Recovered/Not Resolved]

NARRATIVE: CASE EVENT DATE: 2007
